FAERS Safety Report 12756529 (Version 2)
Quarter: 2016Q4

REPORT INFORMATION
  Report Type: Spontaneous
  Country: US (occurrence: US)
  Receive Date: 20160917
  Receipt Date: 20161004
  Transmission Date: 20170207
  Serious: Yes (Disabling, Other)
  Sender: FDA-Public Use
  Company Number: PHEH2016US023250

PATIENT
  Age: 78 Year
  Sex: Male

DRUGS (1)
  1. COSENTYX [Suspect]
     Active Substance: SECUKINUMAB
     Indication: PSORIASIS
     Dosage: 300 MG, QMO
     Route: 058
     Dates: start: 201507, end: 201607

REACTIONS (7)
  - Somnolence [Unknown]
  - Psoriasis [Unknown]
  - Decreased appetite [Recovering/Resolving]
  - Depression [Recovering/Resolving]
  - Weight decreased [Recovering/Resolving]
  - Fatigue [Recovering/Resolving]
  - Asthenia [Recovering/Resolving]

NARRATIVE: CASE EVENT DATE: 201607
